FAERS Safety Report 17003969 (Version 3)
Quarter: 2020Q1

REPORT INFORMATION
  Report Type: Report from Study
  Country: CA (occurrence: CA)
  Receive Date: 20191107
  Receipt Date: 20200121
  Transmission Date: 20200409
  Serious: Yes (Other)
  Sender: FDA-Public Use
  Company Number: PHHY2017CA030051

PATIENT
  Age: 46 Year
  Sex: Male

DRUGS (2)
  1. CELEBREX [Concomitant]
     Active Substance: CELECOXIB
     Indication: PRODUCT USED FOR UNKNOWN INDICATION
     Dosage: UNK
     Route: 065
  2. GILENYA [Suspect]
     Active Substance: FINGOLIMOD HYDROCHLORIDE
     Indication: MULTIPLE SCLEROSIS
     Dosage: 0.5 MG, QD
     Route: 048
     Dates: start: 20170221

REACTIONS (9)
  - Hypermetropia [Unknown]
  - Presbyopia [Unknown]
  - Glaucoma [Not Recovered/Not Resolved]
  - Visual impairment [Unknown]
  - Dizziness [Unknown]
  - Vision blurred [Not Recovered/Not Resolved]
  - Nausea [Unknown]
  - Bradycardia [Unknown]
  - Diarrhoea [Unknown]

NARRATIVE: CASE EVENT DATE: 20170221
